FAERS Safety Report 12246676 (Version 1)
Quarter: 2016Q2

REPORT INFORMATION
  Report Type: Spontaneous
  Country: US (occurrence: US)
  Receive Date: 20160407
  Receipt Date: 20160407
  Transmission Date: 20160815
  Serious: No
  Sender: FDA-Public Use
  Company Number: US-BAXALTA-2016BLT002240

PATIENT
  Age: 15 Year
  Sex: Male
  Weight: 58.5 kg

DRUGS (5)
  1. BENADRYL [Concomitant]
     Active Substance: DIPHENHYDRAMINE HYDROCHLORIDE
     Indication: PREMEDICATION
     Dosage: 30 MIN BEFORE DOSE
     Route: 065
  2. EMLA [Concomitant]
     Active Substance: LIDOCAINE\PRILOCAINE
     Indication: PREMEDICATION
     Dosage: 1 HOUR PRIOR TO DOSE
     Route: 061
  3. HYQVIA [Suspect]
     Active Substance: HUMAN IMMUNOGLOBULIN G\HYALURONIDASE RECOMBINANT HUMAN
     Indication: PRODUCT USED FOR UNKNOWN INDICATION
     Dosage: 20 G, UNK, 3RD DOSE
     Route: 065
     Dates: start: 20160310
  4. HYQVIA [Suspect]
     Active Substance: HUMAN IMMUNOGLOBULIN G\HYALURONIDASE RECOMBINANT HUMAN
     Dosage: 25 G, UNK, 4TH DOSE
     Route: 065
     Dates: start: 20160331, end: 20160331
  5. TYLENOL [Concomitant]
     Active Substance: ACETAMINOPHEN
     Indication: PREMEDICATION
     Dosage: 30 MIN BEFORE DOSE
     Route: 065

REACTIONS (7)
  - Local swelling [Unknown]
  - Discomfort [Recovered/Resolved]
  - Rash generalised [Recovered/Resolved]
  - Underdose [Unknown]
  - Induration [Unknown]
  - Gravitational oedema [Unknown]
  - Pain [Unknown]

NARRATIVE: CASE EVENT DATE: 20160310
